FAERS Safety Report 9243571 (Version 2)
Quarter: 2013Q2

REPORT INFORMATION
  Report Type: Spontaneous
  Country: US (occurrence: US)
  Receive Date: 20130422
  Receipt Date: 20130514
  Transmission Date: 20140414
  Serious: Yes (Other)
  Sender: FDA-Public Use
  Company Number: US-009507513-1304USA008006

PATIENT
  Age: 28 Year
  Sex: Female
  Weight: 56.69 kg

DRUGS (1)
  1. IMPLANON [Suspect]
     Dosage: UNK
     Dates: start: 201204, end: 20130424

REACTIONS (2)
  - Galactorrhoea [Not Recovered/Not Resolved]
  - Breast engorgement [Unknown]
